FAERS Safety Report 21225743 (Version 2)
Quarter: 2022Q3

REPORT INFORMATION
  Report Type: Report from Study
  Country: MX (occurrence: MX)
  Receive Date: 20220818
  Receipt Date: 20220819
  Transmission Date: 20221027
  Serious: Yes (Hospitalization, Other)
  Sender: FDA-Public Use
  Company Number: MX-BRISTOL-MYERS SQUIBB COMPANY-2022-084885

PATIENT
  Age: 33 Year
  Sex: Female

DRUGS (1)
  1. SPRYCEL [Suspect]
     Active Substance: DASATINIB
     Indication: Chronic myeloid leukaemia
     Dosage: DAILY
     Route: 048
     Dates: start: 20211001, end: 20220620

REACTIONS (2)
  - Maternal exposure during pregnancy [Unknown]
  - Chronic myeloid leukaemia [Unknown]
